FAERS Safety Report 25519838 (Version 2)
Quarter: 2025Q3

REPORT INFORMATION
  Report Type: Spontaneous
  Country: US (occurrence: US)
  Receive Date: 20250704
  Receipt Date: 20250809
  Transmission Date: 20251020
  Serious: Yes (Hospitalization, Other)
  Sender: AMGEN
  Company Number: US-AMGEN-USASP2025129137

PATIENT
  Age: 18 Year
  Sex: Female

DRUGS (8)
  1. IVABRADINE [Suspect]
     Active Substance: IVABRADINE
     Indication: Tachycardia
     Route: 065
  2. IVABRADINE [Suspect]
     Active Substance: IVABRADINE
     Indication: Postural orthostatic tachycardia syndrome
     Route: 065
  3. IVABRADINE [Suspect]
     Active Substance: IVABRADINE
     Indication: Off label use
  4. AMITRIPTYLINE [Suspect]
     Active Substance: AMITRIPTYLINE
     Indication: Cystitis interstitial
     Route: 065
  5. METOPROLOL TARTRATE [Suspect]
     Active Substance: METOPROLOL TARTRATE
     Indication: Postural orthostatic tachycardia syndrome
     Route: 040
  6. METOPROLOL TARTRATE [Suspect]
     Active Substance: METOPROLOL TARTRATE
     Indication: Tachycardia
  7. SOTALOL [Suspect]
     Active Substance: SOTALOL
     Indication: Postural orthostatic tachycardia syndrome
     Dosage: UNK UNK, BID (60 MG IN THE MORNING AND 40 MG IN THE AFTERNOON)
     Route: 065
  8. SOTALOL [Suspect]
     Active Substance: SOTALOL
     Indication: Tachycardia

REACTIONS (7)
  - Fatigue [Recovered/Resolved]
  - Chest discomfort [Recovered/Resolved]
  - Sinus tachycardia [Recovered/Resolved]
  - Syncope [Recovered/Resolved]
  - Cystitis interstitial [Recovering/Resolving]
  - Drug ineffective for unapproved indication [Unknown]
  - Off label use [Unknown]
